FAERS Safety Report 17504758 (Version 2)
Quarter: 2020Q2

REPORT INFORMATION
  Report Type: Report from Study
  Country: US (occurrence: US)
  Receive Date: 20200305
  Receipt Date: 20200424
  Transmission Date: 20200713
  Serious: No
  Sender: FDA-Public Use
  Company Number: US-EXELIXIS-CABO-20027801

PATIENT
  Age: 56 Year
  Sex: Female

DRUGS (16)
  1. MAGNESIUM OXIDE. [Concomitant]
     Active Substance: MAGNESIUM OXIDE
     Dosage: UNK
  2. MONTELUKAST [Concomitant]
     Active Substance: MONTELUKAST SODIUM
  3. PREDNISONE. [Concomitant]
     Active Substance: PREDNISONE
  4. IRON [Concomitant]
     Active Substance: IRON
     Dosage: UNK
  5. ORAVIG [Concomitant]
     Active Substance: MICONAZOLE
  6. POLYETHYLENE GLYCOL [Concomitant]
     Active Substance: POLYETHYLENE GLYCOLS
  7. LEVOFLOXACIN. [Concomitant]
     Active Substance: LEVOFLOXACIN
     Dosage: UNK
  8. ELIQUIS [Concomitant]
     Active Substance: APIXABAN
     Dosage: UNK
  9. METOCLOPRAM [Concomitant]
     Active Substance: METOCLOPRAMIDE
  10. ONDANSETRON [Concomitant]
     Active Substance: ONDANSETRON
  11. CIPROFLOXACIN. [Concomitant]
     Active Substance: CIPROFLOXACIN
     Dosage: UNK
  12. LIDOCAINE/PRILOCAINE [Concomitant]
     Active Substance: LIDOCAINE\PRILOCAINE
     Dosage: UNK
  13. OMEPRAZOLE. [Concomitant]
     Active Substance: OMEPRAZOLE
  14. HYDROCODONE BITARTRATE AND ACETAMINOPHEN [Concomitant]
     Active Substance: ACETAMINOPHEN\HYDROCODONE BITARTRATE
     Dosage: UNK
  15. CABOMETYX [Suspect]
     Active Substance: CABOZANTINIB S-MALATE
     Indication: RENAL CANCER
     Dosage: 40 MG, QD
     Route: 048
  16. NYSTATIN. [Concomitant]
     Active Substance: NYSTATIN

REACTIONS (11)
  - Dyspnoea [Unknown]
  - Dehydration [Unknown]
  - Constipation [Unknown]
  - Gastrointestinal haemorrhage [Unknown]
  - Skin ulcer [Unknown]
  - Palmar-plantar erythrodysaesthesia syndrome [Unknown]
  - Blood pressure increased [Unknown]
  - Abdominal pain [Unknown]
  - Diarrhoea [Unknown]
  - Taste disorder [Unknown]
  - Anaemia [Unknown]

NARRATIVE: CASE EVENT DATE: 202001
